FAERS Safety Report 7217315-4 (Version None)
Quarter: 2011Q1

REPORT INFORMATION
  Report Type: 
  Country: None (occurrence: None)
  Receive Date: 20110110
  Receipt Date: 20101231
  Transmission Date: 20110831
  Serious: Yes (Death)
  Sender: FDA-Public Use
  Company Number: US-PFIZER INC-2011000542

PATIENT
  Age: 45 Year
  Sex: Female

DRUGS (8)
  1. METFORMIN HCL [Suspect]
     Route: 048
  2. METOPROLOL [Suspect]
     Route: 048
  3. ZOLPIDEM TARTRATE [Suspect]
     Route: 048
  4. AMLODIPINE BESYLATE [Suspect]
     Dosage: 30 UNK, UNK
     Route: 048
  5. HYDROCHLOROTHIAZIDE [Suspect]
     Route: 048
  6. SITAGLIPTIN [Suspect]
     Route: 048
  7. FENOFIBRIC ACID [Suspect]
     Dosage: UNK
     Route: 048
  8. IRBESARTAN [Suspect]
     Route: 048

REACTIONS (1)
  - COMPLETED SUICIDE [None]
